FAERS Safety Report 20481703 (Version 1)
Quarter: 2022Q1

REPORT INFORMATION
  Report Type: Report from Study
  Country: US (occurrence: US)
  Receive Date: 20220216
  Receipt Date: 20220216
  Transmission Date: 20220423
  Serious: No
  Sender: FDA-Public Use
  Company Number: US-ABBVIE-22P-163-4272958-00

PATIENT
  Age: 46 Year
  Sex: Female
  Weight: 59 kg

DRUGS (6)
  1. ELAGOLIX SODIUM\ESTRADIOL\NORETHINDRONE [Suspect]
     Active Substance: ELAGOLIX SODIUM\ESTRADIOL\NORETHINDRONE
     Indication: Uterine leiomyoma
     Dosage: 300MG/ESTRADIOL/NORETHINDRONE 1.0MG /0.5MG
     Route: 048
     Dates: start: 20190104, end: 20191120
  2. ELAGOLIX SODIUM\ESTRADIOL\NORETHINDRONE [Suspect]
     Active Substance: ELAGOLIX SODIUM\ESTRADIOL\NORETHINDRONE
     Indication: Uterine leiomyoma
     Dosage: ELAGOLIX 300MG/ESTRADIOL/NORETHINDRONE 1.0MG /0.5MG
     Route: 048
     Dates: start: 20191121, end: 20211215
  3. ELAGOLIX [Suspect]
     Active Substance: ELAGOLIX
     Indication: Uterine leiomyoma
     Dosage: PM DOSE
     Route: 048
     Dates: start: 20191121, end: 20211215
  4. VITAMIN D [Concomitant]
     Active Substance: VITAMIN D NOS
     Indication: Vitamin D deficiency
     Route: 048
     Dates: start: 20180905
  5. LEVOTHYROXINE [Concomitant]
     Active Substance: LEVOTHYROXINE
     Indication: Hypothyroidism
     Route: 048
     Dates: start: 2016
  6. SIMVASTATIN [Concomitant]
     Active Substance: SIMVASTATIN
     Indication: Hypercholesterolaemia
     Route: 048
     Dates: start: 2016

REACTIONS (1)
  - Bone density decreased [Not Recovered/Not Resolved]

NARRATIVE: CASE EVENT DATE: 20210813
